FAERS Safety Report 5630666-X (Version None)
Quarter: 2008Q1

REPORT INFORMATION
  Report Type: 
  Country: None (occurrence: None)
  Receive Date: 20080219
  Receipt Date: 20080210
  Transmission Date: 20080703
  Serious: Yes (Other)
  Sender: FDA-Public Use
  Company Number: US-ELI_LILLY_AND_COMPANY-US200801004481

PATIENT
  Sex: Female
  Weight: 82.993 kg

DRUGS (11)
  1. BYETTA [Suspect]
     Dosage: 5 UG, 2/D
     Route: 058
     Dates: start: 20060301, end: 20060401
  2. BYETTA [Suspect]
     Dosage: 10 UG, 2/D
     Route: 058
     Dates: start: 20060401, end: 20060401
  3. BYETTA [Suspect]
     Dosage: 10 UG, EACH MORNING
     Route: 058
     Dates: start: 20060401
  4. BYETTA [Suspect]
     Dosage: 5 UG, EACH EVENING
     Route: 058
     Dates: start: 20060401
  5. BYETTA [Suspect]
     Dosage: 5 UG, 2/D
     Route: 058
     Dates: start: 20060801, end: 20060901
  6. BYETTA [Suspect]
     Dosage: 10 UG, 2/D
     Route: 058
     Dates: start: 20060901, end: 20060901
  7. BYETTA [Suspect]
     Dosage: 5 UG, 2/D
     Route: 058
     Dates: start: 20060901, end: 20080110
  8. BYETTA [Suspect]
     Dosage: 10 UG, EACH MORNING
     Route: 058
     Dates: start: 20080111
  9. BYETTA [Suspect]
     Dosage: 5 UG, EACH EVENING
     Route: 058
     Dates: start: 20080111
  10. METFORMIN HCL [Concomitant]
     Dosage: 1000 MG, 2/D
     Route: 048
     Dates: start: 20051201
  11. ACTOS [Concomitant]
     Dosage: 15 MG, DAILY (1/D)
     Route: 048
     Dates: start: 20070101

REACTIONS (3)
  - BREAST CANCER IN SITU [None]
  - FLUSHING [None]
  - NAUSEA [None]
